FAERS Safety Report 5995558-5 (Version None)
Quarter: 2008Q4

REPORT INFORMATION
  Report Type: 
  Country: None (occurrence: None)
  Receive Date: 20081212
  Receipt Date: 20080929
  Transmission Date: 20090506
  Serious: No
  Sender: FDA-Public Use
  Company Number: US-ABBOTT-08P-163-0479183-00

PATIENT
  Sex: Male

DRUGS (2)
  1. HUMIRA [Suspect]
     Indication: DRUG USE FOR UNKNOWN INDICATION
     Route: 058
     Dates: start: 20070101, end: 20080901
  2. HUMIRA [Suspect]
     Route: 058
     Dates: start: 20080901

REACTIONS (2)
  - ACCIDENTAL EXPOSURE [None]
  - DRUG INEFFECTIVE [None]
